FAERS Safety Report 8209811-8 (Version None)
Quarter: 2012Q1

REPORT INFORMATION
  Report Type: 
  Country: None (occurrence: None)
  Receive Date: 20120314
  Receipt Date: 20120305
  Transmission Date: 20120608
  Serious: Yes (Other)
  Sender: FDA-Public Use
  Company Number: FR-ASTRAZENECA-2012SE16626

PATIENT
  Age: 910 Month
  Sex: Male

DRUGS (6)
  1. CELECTOL [Concomitant]
     Route: 048
  2. CRESTOR [Suspect]
     Indication: HYPERCHOLESTEROLAEMIA
     Route: 048
     Dates: end: 20110603
  3. CRESTOR [Suspect]
     Route: 048
     Dates: start: 20111110, end: 20111115
  4. NIFEDIPINE [Concomitant]
     Route: 048
  5. PLAVIX [Concomitant]
     Route: 048
  6. MICARDIS [Concomitant]
     Route: 048

REACTIONS (1)
  - LUNG DISORDER [None]
